FAERS Safety Report 16873561 (Version 5)
Quarter: 2019Q4

REPORT INFORMATION
  Report Type: Spontaneous
  Country: US (occurrence: US)
  Receive Date: 20191001
  Receipt Date: 20191108
  Transmission Date: 20200122
  Serious: Yes (Other)
  Sender: FDA-Public Use
  Company Number: US-CELGENEUS-USA-20190905998

PATIENT
  Sex: Female

DRUGS (5)
  1. IDHIFA [Suspect]
     Active Substance: ENASIDENIB MESYLATE
     Dosage: 100 MILLIGRAM
     Route: 048
     Dates: start: 2019
  2. ZOFRAN [Concomitant]
     Active Substance: ONDANSETRON HYDROCHLORIDE
     Indication: PRODUCT USED FOR UNKNOWN INDICATION
     Route: 065
  3. IDHIFA [Suspect]
     Active Substance: ENASIDENIB MESYLATE
     Indication: ACUTE MYELOID LEUKAEMIA
     Dosage: 100 MILLIGRAM
     Route: 048
     Dates: start: 20190830
  4. IDHIFA [Suspect]
     Active Substance: ENASIDENIB MESYLATE
     Dosage: 50 MILLIGRAM
     Route: 048
     Dates: start: 2019
  5. TIBSOVO (IVOSIDENIB) [Concomitant]
     Indication: ACUTE MYELOID LEUKAEMIA
     Dosage: 250 MILLIGRAM
     Route: 048
     Dates: start: 20190529, end: 201908

REACTIONS (5)
  - Liver disorder [Unknown]
  - Fatigue [Not Recovered/Not Resolved]
  - Haemoglobin decreased [Not Recovered/Not Resolved]
  - Blood bilirubin increased [Unknown]
  - Myalgia [Not Recovered/Not Resolved]

NARRATIVE: CASE EVENT DATE: 2019
